FAERS Safety Report 7746332-0 (Version None)
Quarter: 2011Q3

REPORT INFORMATION
  Report Type: 
  Country: None (occurrence: None)
  Receive Date: 20110912
  Receipt Date: 20110912
  Transmission Date: 20111222
  Serious: Yes (Hospitalization)
  Sender: FDA-Public Use
  Company Number: None

PATIENT
  Age: 52 Year
  Sex: Female

DRUGS (2)
  1. PEGASYS [Suspect]
     Indication: HEPATITIS C
     Dosage: 180 MCG ONCE PER WEEK SQ
     Route: 058
     Dates: start: 20110726
  2. INCIVEK [Suspect]
     Dosage: 750MG TID PO
     Route: 048
     Dates: start: 20010726

REACTIONS (4)
  - DYSPNOEA [None]
  - PHOTOPHOBIA [None]
  - FALL [None]
  - CHEST PAIN [None]
